FAERS Safety Report 22267373 (Version 1)
Quarter: 2023Q2

REPORT INFORMATION
  Report Type: Report from Study
  Country: US (occurrence: US)
  Receive Date: 20230428
  Receipt Date: 20230428
  Transmission Date: 20230722
  Serious: Yes (Hospitalization, Other)
  Sender: FDA-Public Use
  Company Number: US-GILEAD-2023-0626104

PATIENT
  Sex: Female

DRUGS (14)
  1. AZTREONAM LYSINE [Suspect]
     Active Substance: AZTREONAM LYSINE
     Indication: Product used for unknown indication
     Dosage: INHALE 75 MG 3 TIMES DAILY FOR 28 DAYS ON THEN 28 DAYS OFF
     Route: 055
  2. CLOBAZAM [Concomitant]
     Active Substance: CLOBAZAM
  3. PROPRANOLOL [Concomitant]
     Active Substance: PROPRANOLOL HYDROCHLORIDE
  4. ADVAIR HFA [Concomitant]
     Active Substance: FLUTICASONE PROPIONATE\SALMETEROL XINAFOATE
  5. NEXIUM [Concomitant]
     Active Substance: ESOMEPRAZOLE MAGNESIUM
  6. NITROFURANTOIN [Concomitant]
     Active Substance: NITROFURANTOIN
  7. TOBRAMYCIN [Concomitant]
     Active Substance: TOBRAMYCIN
  8. CLONIDINE [Concomitant]
     Active Substance: CLONIDINE
  9. DIETARY SUPPLEMENT [Concomitant]
     Active Substance: DIETARY SUPPLEMENT
  10. PULMOZYME [Concomitant]
     Active Substance: DORNASE ALFA
  11. KEPPRA [Concomitant]
     Active Substance: LEVETIRACETAM
  12. NANOVM 1 TO 3 YEARS [Concomitant]
  13. RUFINAMIDE [Concomitant]
     Active Substance: RUFINAMIDE
  14. BACLOFEN [Concomitant]
     Active Substance: BACLOFEN

REACTIONS (2)
  - Urinary tract infection [Unknown]
  - Vascular device infection [Unknown]
